FAERS Safety Report 25700268 (Version 1)
Quarter: 2025Q3

REPORT INFORMATION
  Report Type: Spontaneous
  Country: GB (occurrence: GB)
  Receive Date: 20250819
  Receipt Date: 20250819
  Transmission Date: 20251020
  Serious: Yes (Other)
  Sender: PFIZER
  Company Number: None

PATIENT
  Age: 48 Year
  Sex: Female

DRUGS (6)
  1. DEPO-PROVERA [Suspect]
     Active Substance: MEDROXYPROGESTERONE ACETATE
     Indication: Contraception
     Dates: start: 20040517
  2. AMITRIPTYLINE [Concomitant]
     Active Substance: AMITRIPTYLINE
  3. LYMECYCLINE [Concomitant]
     Active Substance: LYMECYCLINE
  4. NIFEDIPINE [Concomitant]
     Active Substance: NIFEDIPINE
  5. ESTRADIOL [Concomitant]
     Active Substance: ESTRADIOL
  6. UTROGESTAN [Concomitant]
     Active Substance: PROGESTERONE

REACTIONS (1)
  - Meningioma [Not Recovered/Not Resolved]

NARRATIVE: CASE EVENT DATE: 20220601
